FAERS Safety Report 21341002 (Version 1)
Quarter: 2022Q3

REPORT INFORMATION
  Report Type: Spontaneous
  Country: US (occurrence: US)
  Receive Date: 20220916
  Receipt Date: 20220916
  Transmission Date: 20221026
  Serious: No
  Sender: FDA-Public Use
  Company Number: US-SA-SAC20220912000716

PATIENT
  Age: 63 Year
  Sex: Male
  Weight: 93.44 kg

DRUGS (1)
  1. DUPIXENT [Suspect]
     Active Substance: DUPILUMAB
     Indication: Asthma
     Dosage: 200 MG, QOW
     Route: 058
     Dates: start: 20220713

REACTIONS (5)
  - Asthma [Unknown]
  - Therapeutic product effect decreased [Unknown]
  - Injection site pain [Unknown]
  - Injection site swelling [Unknown]
  - Lack of injection site rotation [Unknown]
